FAERS Safety Report 10506072 (Version 2)
Quarter: 2014Q4

REPORT INFORMATION
  Report Type: Spontaneous
  Country: BR (occurrence: BR)
  Receive Date: 20141008
  Receipt Date: 20141027
  Transmission Date: 20150528
  Serious: Yes (Other)
  Sender: FDA-Public Use
  Company Number: BR-GLAXOSMITHKLINE-BR2014GSK000063

PATIENT

DRUGS (3)
  1. RITMONORM [Suspect]
     Active Substance: PROPAFENONE HYDROCHLORIDE
     Indication: ARRHYTHMIA
     Dosage: 1 DF, BID
     Route: 048
  2. RITMONORM [Suspect]
     Active Substance: PROPAFENONE HYDROCHLORIDE
     Indication: TACHYCARDIA
  3. RITMONORM [Suspect]
     Active Substance: PROPAFENONE HYDROCHLORIDE
     Indication: VENTRICULAR EXTRASYSTOLES

REACTIONS (12)
  - Dry mouth [Not Recovered/Not Resolved]
  - Hypersensitivity [Recovered/Resolved]
  - Asthenia [Not Recovered/Not Resolved]
  - Dysstasia [Not Recovered/Not Resolved]
  - Dizziness [Not Recovered/Not Resolved]
  - Respiratory disorder [Not Recovered/Not Resolved]
  - Drug ineffective [Unknown]
  - Arrhythmia [Not Recovered/Not Resolved]
  - Dysgeusia [Not Recovered/Not Resolved]
  - Tachycardia [Not Recovered/Not Resolved]
  - Malaise [Not Recovered/Not Resolved]
  - Fatigue [Not Recovered/Not Resolved]

NARRATIVE: CASE EVENT DATE: 20140920
